FAERS Safety Report 5267501-8 (Version None)
Quarter: 2007Q1

REPORT INFORMATION
  Report Type: 
  Country: None (occurrence: None)
  Receive Date: 20061213
  Receipt Date: 20040224
  Transmission Date: 20070707
  Serious: Yes (Hospitalization)
  Sender: FDA-Public Use
  Company Number: 2004UW03283

PATIENT
  Age: 64 Year
  Sex: Female
  Weight: 79.3795 kg

DRUGS (1)
  1. TAMOXIFEN CITRATE [Suspect]
     Indication: CARCINOMA IN SITU
     Dosage: 20 MG PO
     Route: 048
     Dates: start: 20000101, end: 20030101

REACTIONS (1)
  - THROMBOSIS [None]
